FAERS Safety Report 8173081-X (Version None)
Quarter: 2012Q1

REPORT INFORMATION
  Report Type: 
  Country: None (occurrence: None)
  Receive Date: 20120104
  Receipt Date: 20111102
  Transmission Date: 20120608
  Serious: No
  Sender: FDA-Public Use
  Company Number: 2011HGS-002729

PATIENT
  Age: 39 Year
  Sex: Female
  Weight: 138.3471 kg

DRUGS (1)
  1. BENLYSTA [Suspect]
     Indication: SYSTEMIC LUPUS ERYTHEMATOSUS
     Dosage: INTRAVENOUS DRIP
     Route: 041
     Dates: start: 20110901, end: 20110901

REACTIONS (3)
  - SWELLING [None]
  - DYSPNOEA [None]
  - FLUID OVERLOAD [None]
